FAERS Safety Report 7156641-4 (Version None)
Quarter: 2010Q4

REPORT INFORMATION
  Report Type: 
  Country: None (occurrence: None)
  Receive Date: 20101214
  Receipt Date: 20100830
  Transmission Date: 20110411
  Serious: No
  Sender: FDA-Public Use
  Company Number: US-ASTRAZENECA-2008UW08013

PATIENT
  Age: 55 Year
  Sex: Female
  Weight: 73.5 kg

DRUGS (4)
  1. CRESTOR [Suspect]
     Indication: BLOOD CHOLESTEROL INCREASED
     Route: 048
     Dates: start: 20080401
  2. CRESTOR [Suspect]
     Route: 048
  3. METFORMIN [Concomitant]
  4. XANAX [Concomitant]

REACTIONS (4)
  - BLEPHARITIS [None]
  - EYE IRRITATION [None]
  - FLATULENCE [None]
  - OEDEMA PERIPHERAL [None]
